FAERS Safety Report 4950341-4 (Version None)
Quarter: 2006Q1

REPORT INFORMATION
  Report Type: 
  Country: None (occurrence: None)
  Receive Date: 20060315
  Receipt Date: 20060228
  Transmission Date: 20060701
  Serious: Yes (Hospitalization, Disabling, Other)
  Sender: FDA-Public Use
  Company Number: 2006-00312

PATIENT
  Sex: Female

DRUGS (2)
  1. VELCADE [Suspect]
     Indication: MULTIPLE MYELOMA
     Dosage: 1.00 MG/M2 , INTRAVENOUS ; 1.30 MG/M2 INTRAVENOUS
     Route: 042
     Dates: start: 20051108, end: 20051118
  2. VELCADE [Suspect]
     Indication: MULTIPLE MYELOMA
     Dosage: 1.00 MG/M2 , INTRAVENOUS ; 1.30 MG/M2 INTRAVENOUS
     Route: 042
     Dates: start: 20051129, end: 20051209

REACTIONS (3)
  - BLOOD PRESSURE INCREASED [None]
  - CARDIAC FAILURE [None]
  - PNEUMONIA [None]
